FAERS Safety Report 8116000-4 (Version None)
Quarter: 2011Q4

REPORT INFORMATION
  Report Type: 
  Country: None (occurrence: None)
  Receive Date: 20111227
  Receipt Date: 20111118
  Transmission Date: 20120403
  Serious: Yes (Other)
  Sender: FDA-Public Use
  Company Number: PHHY2011US63205

PATIENT
  Age: 50 Year
  Sex: Female
  Weight: 70.7 kg

DRUGS (10)
  1. LEVOTHYROXINE SODIUM [Concomitant]
  2. GILENYA [Suspect]
     Indication: RELAPSING-REMITTING MULTIPLE SCLEROSIS
     Dosage: 0.5 MG, QD, ORAL
     Route: 048
     Dates: start: 20110324
  3. SIMVASTATIN [Concomitant]
  4. BACLOFEN [Concomitant]
  5. DICLOFENAC SODIUM [Concomitant]
  6. MENEST ^MONARCH^ (ESTROGENS ESTERFIED) [Concomitant]
  7. SERTRALINE HYDROCHLORIDE [Concomitant]
  8. WELLBUTRIN [Concomitant]
  9. OXYCODONE HCL [Concomitant]
  10. TRAZODONE HCL [Concomitant]

REACTIONS (3)
  - BALANCE DISORDER [None]
  - MEMORY IMPAIRMENT [None]
  - VISION BLURRED [None]
